FAERS Safety Report 8094021-8 (Version None)
Quarter: 2012Q1

REPORT INFORMATION
  Report Type: 
  Country: None (occurrence: None)
  Receive Date: 20120131
  Receipt Date: 20120125
  Transmission Date: 20120608
  Serious: Yes (Life-Threatening, Hospitalization, Other)
  Sender: FDA-Public Use
  Company Number: PHEH2011US03830

PATIENT
  Sex: Female
  Weight: 76 kg

DRUGS (10)
  1. EVENING PRIMROSE OIL [Concomitant]
  2. MULTI-VITAMINS [Concomitant]
     Dosage: 1 DF, DAILY
  3. SELENIUM [Concomitant]
  4. GREEN TEA [Concomitant]
  5. CRANBERRY [Concomitant]
  6. VITAMIN A AND D [Concomitant]
  7. PROBIOTICS [Concomitant]
  8. CALCIUM WITH VITAMIN D [Concomitant]
  9. GILENYA [Suspect]
     Indication: MULTIPLE SCLEROSIS
     Dosage: 0.5 MG, UNK
     Route: 048
     Dates: start: 20110701
  10. FISH OIL [Concomitant]

REACTIONS (21)
  - MONOCYTE COUNT INCREASED [None]
  - CD4 LYMPHOCYTES DECREASED [None]
  - CD8 LYMPHOCYTES DECREASED [None]
  - BRADYCARDIA [None]
  - PALPITATIONS [None]
  - DEPRESSED MOOD [None]
  - WHITE BLOOD CELL COUNT DECREASED [None]
  - CD4/CD8 RATIO DECREASED [None]
  - POLLAKIURIA [None]
  - DEPRESSION [None]
  - T-LYMPHOCYTE COUNT DECREASED [None]
  - ATRIOVENTRICULAR BLOCK FIRST DEGREE [None]
  - VITAMIN D DEFICIENCY [None]
  - HEADACHE [None]
  - BLOOD PRESSURE DECREASED [None]
  - B-LYMPHOCYTE COUNT DECREASED [None]
  - NEUTROPHIL COUNT DECREASED [None]
  - NODAL RHYTHM [None]
  - DIZZINESS [None]
  - ATRIOVENTRICULAR BLOCK COMPLETE [None]
  - ATRIOVENTRICULAR BLOCK SECOND DEGREE [None]
